FAERS Safety Report 14610394 (Version 4)
Quarter: 2022Q1

REPORT INFORMATION
  Report Type: Spontaneous
  Country: US (occurrence: US)
  Receive Date: 20180307
  Receipt Date: 20220303
  Transmission Date: 20220424
  Serious: Yes (Other)
  Sender: FDA-Public Use
  Company Number: US-GILEAD-2018-0324174

PATIENT
  Sex: Male

DRUGS (1)
  1. DESCOVY [Suspect]
     Active Substance: EMTRICITABINE\TENOFOVIR ALAFENAMIDE FUMARATE
     Indication: Product used for unknown indication
     Dosage: UNK
     Route: 065

REACTIONS (14)
  - Suicidal ideation [Unknown]
  - Psychotic disorder [Unknown]
  - Mental disorder [Unknown]
  - Autoscopy [Unknown]
  - Dissociation [Unknown]
  - Hot flush [Unknown]
  - Vomiting [Unknown]
  - Eructation [Unknown]
  - Dysgeusia [Unknown]
  - Product after taste [Unknown]
  - Product colour issue [Unknown]
  - Product coating issue [Unknown]
  - Product dispensing error [Unknown]
  - Suspected counterfeit product [Unknown]
